FAERS Safety Report 8483636-0 (Version None)
Quarter: 2012Q3

REPORT INFORMATION
  Report Type: 
  Country: None (occurrence: None)
  Receive Date: 20120702
  Receipt Date: 20120628
  Transmission Date: 20120928
  Serious: Yes (Hospitalization)
  Sender: FDA-Public Use
  Company Number: SK-AMGEN-SVKSP2012040207

PATIENT
  Age: 39 Year
  Sex: Female

DRUGS (1)
  1. XGEVA [Suspect]
     Indication: BREAST CANCER METASTATIC
     Dosage: 120 MG, UNK
     Route: 058
     Dates: start: 20120605

REACTIONS (4)
  - DIARRHOEA [None]
  - HYPOTENSION [None]
  - VOMITING [None]
  - HYPERHIDROSIS [None]
